FAERS Safety Report 6745498-9 (Version None)
Quarter: 2010Q2

REPORT INFORMATION
  Report Type: 
  Country: None (occurrence: None)
  Receive Date: 20100528
  Receipt Date: 20100524
  Transmission Date: 20101027
  Serious: Yes (Death, Other)
  Sender: FDA-Public Use
  Company Number: TR-JNJFOC-20100509438

PATIENT
  Age: 65 Year
  Sex: Male
  Weight: 48 kg

DRUGS (5)
  1. DURAGESIC-100 [Suspect]
     Indication: CANCER PAIN
     Route: 062
  2. DURAGESIC-100 [Suspect]
     Route: 062
  3. ANTIEMETIC [Concomitant]
     Route: 065
  4. PULMICORT [Concomitant]
     Route: 065
  5. COMBIVENT [Concomitant]
     Route: 065

REACTIONS (7)
  - COGNITIVE DISORDER [None]
  - HALLUCINATION [None]
  - INAPPROPRIATE SCHEDULE OF DRUG ADMINISTRATION [None]
  - LOSS OF CONSCIOUSNESS [None]
  - METASTASES TO CENTRAL NERVOUS SYSTEM [None]
  - OVERDOSE [None]
  - RESPIRATORY DEPRESSION [None]
